FAERS Safety Report 17821432 (Version 2)
Quarter: 2020Q2

REPORT INFORMATION
  Report Type: Report from Study
  Country: KR (occurrence: KR)
  Receive Date: 20200525
  Receipt Date: 20200527
  Transmission Date: 20200714
  Serious: Yes (Hospitalization)
  Sender: FDA-Public Use
  Company Number: KR-TAKEDA-2020TUS023534

PATIENT
  Age: 51 Year
  Sex: Female
  Weight: 72.5 kg

DRUGS (7)
  1. YEAST [Concomitant]
     Active Substance: YEAST
     Indication: ALOPECIA AREATA
     Dosage: 100 MILLIGRAM, TID
     Route: 048
     Dates: start: 20200113, end: 20200202
  2. TRIAMCINOLONE ACETONIDE. [Concomitant]
     Active Substance: TRIAMCINOLONE ACETONIDE
     Indication: ALOPECIA AREATA
     Dosage: UNK UNK, QD
     Route: 026
     Dates: start: 20200120, end: 20200120
  3. VORTIOXETINE. [Suspect]
     Active Substance: VORTIOXETINE
     Indication: MAJOR DEPRESSION
     Dosage: 10 MILLIGRAM, QD
     Route: 048
     Dates: start: 20200106
  4. ALPRAZOLAM. [Concomitant]
     Active Substance: ALPRAZOLAM
     Indication: MAJOR DEPRESSION
     Dosage: 0.25 MILLIGRAM, BID
     Route: 048
     Dates: start: 20200106
  5. TRAZODONE [Concomitant]
     Active Substance: TRAZODONE HYDROCHLORIDE
     Indication: MAJOR DEPRESSION
     Dosage: 25 MILLIGRAM, QD
     Route: 048
     Dates: start: 20200106
  6. LORAZEPAM. [Concomitant]
     Active Substance: LORAZEPAM
     Indication: MAJOR DEPRESSION
     Dosage: 0.5 MILLIGRAM, QD
     Route: 048
     Dates: start: 20200106
  7. QUETIAPINE. [Concomitant]
     Active Substance: QUETIAPINE
     Indication: MAJOR DEPRESSION
     Dosage: 12.5 MILLIGRAM, QD
     Route: 048
     Dates: start: 20200120

REACTIONS (1)
  - Osteoma [Recovered/Resolved]

NARRATIVE: CASE EVENT DATE: 20200217
